FAERS Safety Report 9995200 (Version 2)
Quarter: 2014Q1

REPORT INFORMATION
  Report Type: Spontaneous
  Country: US (occurrence: US)
  Receive Date: 20140311
  Receipt Date: 20140311
  Transmission Date: 20141002
  Serious: No
  Sender: FDA-Public Use
  Company Number: US-BAXTER-2011BH029461

PATIENT
  Age: 62 Year
  Sex: Male
  Weight: 72.64 kg

DRUGS (7)
  1. GAMMAGARD S/D [Suspect]
     Indication: IMMUNODEFICIENCY COMMON VARIABLE
     Route: 065
  2. GAMMAGARD S/D [Suspect]
     Indication: BLOOD IMMUNOGLOBULIN G DECREASED
     Route: 065
     Dates: start: 2011
  3. GAMMAGARD S/D [Suspect]
     Indication: BLOOD IMMUNOGLOBULIN M DECREASED
     Route: 065
  4. MINOCYCLINE [Concomitant]
     Indication: PRODUCT USED FOR UNKNOWN INDICATION
     Route: 065
  5. CLINDAMYCIN [Concomitant]
     Indication: PRODUCT USED FOR UNKNOWN INDICATION
     Route: 065
  6. PLAQUENIL [Concomitant]
     Indication: PRODUCT USED FOR UNKNOWN INDICATION
     Route: 065
  7. AZITHROMYCIN [Concomitant]
     Indication: PRODUCT USED FOR UNKNOWN INDICATION
     Route: 065

REACTIONS (3)
  - Skin discolouration [Recovered/Resolved]
  - Skin discolouration [Unknown]
  - Treatment noncompliance [Unknown]
